FAERS Safety Report 8481449-7 (Version None)
Quarter: 2012Q3

REPORT INFORMATION
  Report Type: 
  Country: None (occurrence: None)
  Receive Date: 20120702
  Receipt Date: 20120625
  Transmission Date: 20120928
  Serious: Yes (Death)
  Sender: FDA-Public Use
  Company Number: US-ASTELLAS-2012US005716

PATIENT
  Sex: Female

DRUGS (5)
  1. CELLCEPT [Concomitant]
     Indication: LIVER TRANSPLANT
     Dosage: 250 MG, BID
     Route: 048
     Dates: start: 20090826, end: 20120408
  2. PROGRAF [Suspect]
     Indication: LIVER TRANSPLANT
     Dosage: 1 MG, BID
     Route: 048
     Dates: start: 20090826, end: 20120408
  3. BACTRIM [Concomitant]
     Indication: PRODUCT USED FOR UNKNOWN INDICATION
     Dosage: UNK DF, 3XWEEKLY, ONE TABLET MONDAY, WEDNESDAY, FRIDAY
     Route: 048
     Dates: start: 20090801, end: 20120408
  4. ALDACTONE [Concomitant]
     Indication: PRODUCT USED FOR UNKNOWN INDICATION
     Dosage: 25 MG, BID
     Route: 048
     Dates: start: 20120201, end: 20120408
  5. LASIX [Concomitant]
     Indication: PRODUCT USED FOR UNKNOWN INDICATION
     Dosage: 20 MG, BID
     Route: 048
     Dates: start: 20120301, end: 20120408

REACTIONS (1)
  - DEATH [None]
